FAERS Safety Report 9177704 (Version 1)
Quarter: 2013Q1

REPORT INFORMATION
  Report Type: Spontaneous
  Country: US (occurrence: None)
  Receive Date: 20130318
  Receipt Date: 20130318
  Transmission Date: 20140127
  Serious: Yes (Other)
  Sender: FDA-Public Use
  Company Number: 2013HINLIT0039

PATIENT
  Age: 52 Year
  Sex: Female

DRUGS (1)
  1. LITHIUM (LITHIUM) UNKNOWN [Suspect]
     Indication: BIPOLAR DISORDER

REACTIONS (4)
  - Renal cyst [None]
  - Polydipsia [None]
  - Polyuria [None]
  - Blood creatinine increased [None]
